FAERS Safety Report 15283759 (Version 4)
Quarter: 2019Q1

REPORT INFORMATION
  Report Type: Spontaneous
  Country: DE (occurrence: DE)
  Receive Date: 20180816
  Receipt Date: 20190201
  Transmission Date: 20190417
  Serious: Yes (Other)
  Sender: FDA-Public Use
  Company Number: PHHY2018DE049327

PATIENT
  Age: 61 Year
  Sex: Female
  Weight: 108 kg

DRUGS (12)
  1. COSENTYX [Suspect]
     Active Substance: SECUKINUMAB
     Indication: SPONDYLITIS
     Dosage: 150 MG, QMO
     Route: 058
     Dates: start: 201808, end: 201808
  2. OXAZEPAM. [Concomitant]
     Active Substance: OXAZEPAM
     Indication: PRODUCT USED FOR UNKNOWN INDICATION
     Dosage: 1 DF, QHS
     Route: 065
  3. PREDNISOLONE. [Concomitant]
     Active Substance: PREDNISOLONE
     Indication: PRODUCT USED FOR UNKNOWN INDICATION
     Dosage: 10 MG (8 MG IN THE MORNING AND 2 MG IN NIGHT)
     Route: 048
  4. PREDNISOLONE. [Concomitant]
     Active Substance: PREDNISOLONE
     Dosage: 5 MG, UNK
     Route: 048
  5. COSENTYX [Suspect]
     Active Substance: SECUKINUMAB
     Indication: PUSTULAR PSORIASIS
     Dosage: 150 MG, QMO
     Route: 058
     Dates: start: 201804
  6. DEKRISTOL [Concomitant]
     Active Substance: CHOLECALCIFEROL
     Indication: PRODUCT USED FOR UNKNOWN INDICATION
     Dosage: 1 DF, QW
     Route: 065
  7. MAGNESIUM VERLA [Concomitant]
     Active Substance: MAGNESIUM
     Indication: PRODUCT USED FOR UNKNOWN INDICATION
     Dosage: 1 DF, BID (MORNING AND NIGHT)
     Route: 065
  8. NEBIVOLOL. [Concomitant]
     Active Substance: NEBIVOLOL
     Indication: PRODUCT USED FOR UNKNOWN INDICATION
     Dosage: 1.5 DF, (0.5 DF IN MORNING AND 1 DF IN THE EVENING)
     Route: 065
  9. AZULFIDINE [Concomitant]
     Active Substance: SULFASALAZINE
     Indication: PRODUCT USED FOR UNKNOWN INDICATION
     Dosage: 5 DF, QD (2 DF IN MORNING AND 3 DF IN NIGHT)
     Route: 048
  10. CANDESARTAN. [Concomitant]
     Active Substance: CANDESARTAN
     Indication: PRODUCT USED FOR UNKNOWN INDICATION
     Dosage: 1 DF, BID (MORNING AND EVENING)
     Route: 065
  11. TRAUMEEL [Concomitant]
     Indication: PRODUCT USED FOR UNKNOWN INDICATION
     Dosage: UNK
     Route: 065
  12. PARACETAMOL [Concomitant]
     Active Substance: ACETAMINOPHEN
     Indication: PAIN
     Dosage: UNK
     Route: 065

REACTIONS (18)
  - Blister [Recovering/Resolving]
  - Cyst [Not Recovered/Not Resolved]
  - Pigmentation disorder [Recovering/Resolving]
  - Rash pustular [Recovering/Resolving]
  - Visual acuity reduced [Recovering/Resolving]
  - Auditory disorder [Recovering/Resolving]
  - Iritis [Recovering/Resolving]
  - Pain [Recovering/Resolving]
  - Cyst rupture [Not Recovered/Not Resolved]
  - Cataract [Recovering/Resolving]
  - Arrhythmia [Recovering/Resolving]
  - Psoriasis [Recovering/Resolving]
  - Acne [Recovering/Resolving]
  - Folliculitis [Recovering/Resolving]
  - Malaise [Recovering/Resolving]
  - Palpitations [Recovering/Resolving]
  - Cough [Recovered/Resolved]
  - Drug intolerance [Unknown]

NARRATIVE: CASE EVENT DATE: 201806
